FAERS Safety Report 16134799 (Version 1)
Quarter: 2019Q1

REPORT INFORMATION
  Report Type: Spontaneous
  Country: DE (occurrence: DE)
  Receive Date: 20190329
  Receipt Date: 20190329
  Transmission Date: 20190418
  Serious: Yes (Other)
  Sender: FDA-Public Use
  Company Number: DE-MYLANLABS-2019M1027739

PATIENT
  Age: 35 Year
  Sex: Male

DRUGS (2)
  1. LAMOTRIGINE. [Suspect]
     Active Substance: LAMOTRIGINE
     Indication: EPILEPSY
     Dosage: 200 MILLIGRAM, QD (INCREASED TO 200 MG DAILY)
     Route: 048
  2. CARBAMAZEPINE. [Suspect]
     Active Substance: CARBAMAZEPINE
     Indication: EPILEPSY
     Dosage: DAILY DOSE: 1200.000 (E2B UNIT: 003)
     Route: 065

REACTIONS (6)
  - Discomfort [Recovering/Resolving]
  - Delusion [Recovered/Resolved]
  - Hallucination, visual [Recovered/Resolved]
  - Illusion [Recovering/Resolving]
  - Psychotic disorder [Recovering/Resolving]
  - Substance-induced psychotic disorder [Recovering/Resolving]
